FAERS Safety Report 11186300 (Version 1)
Quarter: 2015Q2

REPORT INFORMATION
  Report Type: Spontaneous
  Country: GB (occurrence: GB)
  Receive Date: 20150612
  Receipt Date: 20150612
  Transmission Date: 20150821
  Serious: Yes (Life-Threatening, Hospitalization)
  Sender: FDA-Public Use
  Company Number: GB-ASTRAZENECA-2015SE56198

PATIENT
  Age: 60 Year
  Sex: Female
  Weight: 63.5 kg

DRUGS (6)
  1. METFORMIN [Concomitant]
     Active Substance: METFORMIN HYDROCHLORIDE
  2. ASACOL [Concomitant]
     Active Substance: MESALAMINE
  3. GABAPENTIN. [Concomitant]
     Active Substance: GABAPENTIN
  4. DAPAGLIFLOZIN [Suspect]
     Active Substance: DAPAGLIFLOZIN
     Indication: DIABETES MELLITUS
     Route: 048
     Dates: start: 20141204, end: 20150517
  5. ASPIRIN. [Concomitant]
     Active Substance: ASPIRIN
  6. SIMVASTATIN. [Concomitant]
     Active Substance: SIMVASTATIN

REACTIONS (1)
  - Diabetic ketoacidosis [Recovered/Resolved]

NARRATIVE: CASE EVENT DATE: 20150517
